FAERS Safety Report 4527136-9 (Version None)
Quarter: 2004Q4

REPORT INFORMATION
  Report Type: 
  Country: None (occurrence: None)
  Receive Date: 20041202
  Receipt Date: 20040823
  Transmission Date: 20050328
  Serious: Yes (Hospitalization, Disabling)
  Sender: FDA-Public Use
  Company Number: 20040800377

PATIENT
  Sex: Female

DRUGS (1)
  1. PHENERGAN [Suspect]
     Indication: ANAESTHESIA
     Dates: start: 20030602, end: 20030602

REACTIONS (2)
  - EXTRAVASATION [None]
  - GANGRENE [None]
